FAERS Safety Report 7016128-6 (Version None)
Quarter: 2010Q3

REPORT INFORMATION
  Report Type: 
  Country: None (occurrence: None)
  Receive Date: 20100923
  Receipt Date: 20100910
  Transmission Date: 20110219
  Serious: Yes (Other)
  Sender: FDA-Public Use
  Company Number: 2010SP050044

PATIENT
  Age: 48 Year
  Sex: Male
  Weight: 100 kg

DRUGS (1)
  1. ONCOTICE [Suspect]
     Indication: BLADDER CANCER STAGE 0, WITH CANCER IN SITU
     Dosage: 8 DF;
     Dates: start: 20090526, end: 20091020

REACTIONS (1)
  - REITER'S SYNDROME [None]
